FAERS Safety Report 17811834 (Version 1)
Quarter: 2020Q2

REPORT INFORMATION
  Report Type: Spontaneous
  Country: ES (occurrence: ES)
  Receive Date: 20200521
  Receipt Date: 20200521
  Transmission Date: 20200714
  Serious: Yes (Hospitalization)
  Sender: FDA-Public Use
  Company Number: ES-MYLANLABS-2020M1050103

PATIENT
  Age: 76 Year
  Sex: Male

DRUGS (3)
  1. EPINEPHRINE. [Suspect]
     Active Substance: EPINEPHRINE
     Indication: HAEMORRHAGE PROPHYLAXIS
     Dosage: DOSAGE AND ROUTE: SUBMUCOSAL INJECTION WITH DILUTION OF GLYCEROL..
  2. GLYCEROL [Concomitant]
     Active Substance: GLYCERIN
     Indication: PRODUCT USED FOR UNKNOWN INDICATION
     Dosage: SUBMUCOSAL INJECTION WITH DILUTION OF GLYCEROL..
  3. INDIGO CARMINE [Concomitant]
     Active Substance: INDIGOTINDISULFONATE SODIUM
     Indication: PRODUCT USED FOR UNKNOWN INDICATION
     Dosage: SUBMUCOSAL INJECTION WITH DILUTION OF GLYCEROL..

REACTIONS (3)
  - Off label use [Unknown]
  - Acute myocardial infarction [Unknown]
  - Supraventricular tachycardia [Recovered/Resolved]
